FAERS Safety Report 8793990 (Version 1)
Quarter: 2012Q4

REPORT INFORMATION
  Report Type: 
  Country: BR (occurrence: BR)
  Receive Date: 20120917
  Receipt Date: 20120917
  Transmission Date: 20130627
  Serious: Yes (Other)
  Sender: FDA-Public Use
  Company Number: BR-PFIZER INC-2012222900

PATIENT
  Age: 48 Year
  Sex: Female
  Weight: 72 kg

DRUGS (3)
  1. ZOLOFT [Suspect]
     Indication: DEPRESSION
     Dosage: 50 mg, 1x/day
     Route: 048
     Dates: start: 2004, end: 2010
  2. FRONTAL [Suspect]
     Indication: ANXIETY
     Dosage: 2 mg, 1x/day
     Route: 048
     Dates: start: 201206
  3. CITALOPRAM [Suspect]
     Dosage: 1 tablet or capsule (20 mg), 1x/day
     Route: 048
     Dates: start: 2008, end: 201206

REACTIONS (12)
  - Hepatic steatosis [Unknown]
  - Hypertension [Unknown]
  - Drug ineffective [Unknown]
  - Insomnia [Unknown]
  - Lethargy [Unknown]
  - Somnolence [Unknown]
  - Disorientation [Unknown]
  - Hiccups [Recovered/Resolved]
  - Dry mouth [Unknown]
  - Thyroid disorder [Unknown]
  - Blood cholesterol increased [Unknown]
  - Hypothyroidism [Unknown]
